FAERS Safety Report 7315917-8 (Version None)
Quarter: 2011Q1

REPORT INFORMATION
  Report Type: 
  Country: None (occurrence: None)
  Receive Date: 20110225
  Receipt Date: 20110218
  Transmission Date: 20110831
  Serious: Yes (Other)
  Sender: FDA-Public Use
  Company Number: US-B.I. PHARMACEUTICALS,INC./RIDGEFIELD-2011-BP-03404BP

PATIENT
  Age: 74 Year
  Sex: Female

DRUGS (1)
  1. MICARDIS [Suspect]
     Indication: HYPERTENSION
     Dosage: 80 MG
     Route: 048
     Dates: start: 20100101

REACTIONS (10)
  - URINE OUTPUT DECREASED [None]
  - APHAGIA [None]
  - WEIGHT DECREASED [None]
  - DEHYDRATION [None]
  - DYSPHAGIA [None]
  - EXOPHTHALMOS [None]
  - BLOOD PRESSURE INCREASED [None]
  - SWOLLEN TONGUE [None]
  - SWELLING [None]
  - HEAD DISCOMFORT [None]
